FAERS Safety Report 9298588 (Version 1)
Quarter: 2013Q2

REPORT INFORMATION
  Report Type: Spontaneous
  Country: GB (occurrence: GB)
  Receive Date: 20130520
  Receipt Date: 20130520
  Transmission Date: 20140414
  Serious: Yes (Other)
  Sender: FDA-Public Use
  Company Number: GB-GALDERMA-GB13001501

PATIENT
  Sex: Female

DRUGS (10)
  1. METRONIDAZOLE [Suspect]
  2. ABSTRAL [Suspect]
  3. DUROGESIC DTRANS [Suspect]
  4. EFFENTORA [Suspect]
     Route: 002
  5. FENTALIS [Suspect]
  6. HYDROMORPHONE [Suspect]
  7. MEZOLAR MATRIX [Suspect]
  8. TRAMADOL [Suspect]
     Indication: ANALGESIC INTERVENTION SUPPORTIVE THERAPY
  9. TRIMETHOPRIM [Suspect]
  10. ZOMORPH [Suspect]

REACTIONS (5)
  - Dyspnoea [Unknown]
  - Drug hypersensitivity [Unknown]
  - Hypotension [Unknown]
  - Urticaria [Unknown]
  - Overdose [Unknown]
